FAERS Safety Report 8554550-7 (Version None)
Quarter: 2012Q3

REPORT INFORMATION
  Report Type: 
  Country: None (occurrence: None)
  Receive Date: 20120731
  Receipt Date: 20120718
  Transmission Date: 20120928
  Serious: No
  Sender: FDA-Public Use
  Company Number: US-ASTRAZENECA-2012SE50844

PATIENT
  Age: 73 Year
  Sex: Female
  Weight: 68.9 kg

DRUGS (9)
  1. RHINOCORT [Suspect]
     Indication: SINUSITIS
     Route: 045
     Dates: start: 20080101
  2. RHINOCORT [Suspect]
     Route: 045
     Dates: start: 20120718
  3. HEART MEDICATION [Concomitant]
     Indication: CARDIAC DISORDER
  4. RHINOCORT [Suspect]
     Indication: MULTIPLE ALLERGIES
     Route: 045
     Dates: start: 20080101
  5. RHINOCORT [Suspect]
     Route: 045
     Dates: start: 20120718
  6. CHOLESTEROL MEDICATION [Concomitant]
     Indication: BLOOD CHOLESTEROL ABNORMAL
  7. MEDICATIONS FOR DIABETES [Concomitant]
     Indication: DIABETES MELLITUS
  8. PRILOSEC [Concomitant]
  9. MEDICATION FOR BLADDER CONTROL [Concomitant]
     Indication: URINARY INCONTINENCE

REACTIONS (5)
  - EPISTAXIS [None]
  - SNEEZING [None]
  - INTENTIONAL DRUG MISUSE [None]
  - THROAT IRRITATION [None]
  - INCREASED UPPER AIRWAY SECRETION [None]
